FAERS Safety Report 8392423-3 (Version None)
Quarter: 2012Q2

REPORT INFORMATION
  Report Type: 
  Country: None (occurrence: None)
  Receive Date: 20120529
  Receipt Date: 20111114
  Transmission Date: 20120825
  Serious: Yes (Other)
  Sender: FDA-Public Use
  Company Number: US-BAYER-2012-051282

PATIENT
  Sex: Female

DRUGS (9)
  1. FLUTICASONE PROPIONATE [Concomitant]
  2. VITAMIN D [Concomitant]
  3. CROHN'S RELATED MEDICATIONS [Concomitant]
  4. MULTI-VITAMINS [Concomitant]
  5. HEART [Concomitant]
  6. ASPIRIN [Suspect]
     Dosage: ONCE DAILY
     Route: 048
  7. FOSAMAX [Concomitant]
  8. POLYETHYLENE GLYCOL [Concomitant]
  9. ASPIRIN [Concomitant]

REACTIONS (1)
  - DEPENDENCE [None]
